FAERS Safety Report 5266170-0 (Version None)
Quarter: 2007Q1

REPORT INFORMATION
  Report Type: 
  Country: None (occurrence: None)
  Receive Date: 20070315
  Receipt Date: 20070312
  Transmission Date: 20070707
  Serious: Yes (Life-Threatening, Hospitalization)
  Sender: FDA-Public Use
  Company Number: PHBS2007ES04394

PATIENT
  Age: 33 Year
  Sex: Female

DRUGS (1)
  1. TORECAN [Suspect]
     Indication: VERTIGO
     Dosage: 20 MG/DAY
     Route: 048
     Dates: start: 20060904, end: 20060907

REACTIONS (2)
  - DYSTONIA [None]
  - LARYNGOSPASM [None]
